FAERS Safety Report 7353653-2 (Version None)
Quarter: 2011Q1

REPORT INFORMATION
  Report Type: 
  Country: None (occurrence: None)
  Receive Date: 20110303
  Receipt Date: 20101102
  Transmission Date: 20110831
  Serious: Yes (Other)
  Sender: FDA-Public Use
  Company Number: US-005449

PATIENT
  Age: 48 Year
  Sex: Female

DRUGS (21)
  1. FERROUS SULFATE TAB [Concomitant]
  2. AMLODIPINE [Concomitant]
  3. SERTRALINE (SERTRALINE) [Concomitant]
  4. CLONIDINE [Concomitant]
  5. ALEVE [Concomitant]
  6. PYRIDOXINE (PYRIDOXINE) [Concomitant]
  7. ISOVUE-300 [Suspect]
     Indication: PULMONARY EMBOLISM
     Dosage: 75ML ONCE INTRAVENOUS (NOT OTHERWISE SPECIFIED)
     Route: 042
     Dates: start: 20101027, end: 20101027
  8. ISOVUE-300 [Suspect]
     Indication: DYSPNOEA
     Dosage: 75ML ONCE INTRAVENOUS (NOT OTHERWISE SPECIFIED)
     Route: 042
     Dates: start: 20101027, end: 20101027
  9. ISOVUE-300 [Suspect]
     Indication: COMPUTERISED TOMOGRAM ABDOMEN
     Dosage: 75ML ONCE INTRAVENOUS (NOT OTHERWISE SPECIFIED)
     Route: 042
     Dates: start: 20101027, end: 20101027
  10. PANTOPRAZOLE [Concomitant]
  11. SYNTHROID (LEVOTHYRXONE SODIUM) [Concomitant]
  12. PULMICORT [Concomitant]
  13. FOLIC ACID [Concomitant]
  14. CODEINE-GUAIFENESIN (CODEINE; GUAIFENESIN) [Concomitant]
  15. CHOLECALCIFEROL (COLECALCIFEROL) [Concomitant]
  16. ALENDRONATE (ALENDRONATE SODIUM) [Concomitant]
  17. PREDNISONE TAB [Concomitant]
  18. DIOVAN [Concomitant]
  19. ASCORBIC ACID [Concomitant]
  20. CHLORTHALIDONE [Concomitant]
  21. OXYGEN (OXYGEN) [Concomitant]

REACTIONS (1)
  - HYPERSENSITIVITY [None]
